FAERS Safety Report 21706065 (Version 1)
Quarter: 2022Q4

REPORT INFORMATION
  Report Type: Spontaneous
  Country: NL (occurrence: NL)
  Receive Date: 20221209
  Receipt Date: 20221209
  Transmission Date: 20230113
  Serious: Yes (Other)
  Sender: FDA-Public Use
  Company Number: NL-NOVOPROD-986671

PATIENT
  Age: 61 Year
  Sex: Female

DRUGS (1)
  1. NOVORAPID [Suspect]
     Active Substance: INSULIN ASPART
     Indication: Diabetes mellitus
     Dosage: 28 IU, QOD
     Route: 058

REACTIONS (3)
  - Renal cell carcinoma [Unknown]
  - Breast cancer [Unknown]
  - Insulin resistance [Unknown]
